FAERS Safety Report 5700934-1 (Version None)
Quarter: 2008Q2

REPORT INFORMATION
  Report Type: 
  Country: None (occurrence: None)
  Receive Date: 20080410
  Receipt Date: 20080331
  Transmission Date: 20081010
  Serious: Yes (Other)
  Sender: FDA-Public Use
  Company Number: B0514932A

PATIENT
  Age: 57 Year
  Sex: Female

DRUGS (1)
  1. ZINNAT [Suspect]
     Indication: BRONCHITIS
     Route: 048
     Dates: start: 20070901, end: 20070901

REACTIONS (2)
  - ANGIOEDEMA [None]
  - URTICARIA [None]
